FAERS Safety Report 5032315-0 (Version None)
Quarter: 2006Q2

REPORT INFORMATION
  Report Type: 
  Country: None (occurrence: None)
  Receive Date: 20060620
  Receipt Date: 20060620
  Transmission Date: 20061013
  Serious: Yes (Other)
  Sender: FDA-Public Use
  Company Number: None

PATIENT
  Age: 47 Year
  Sex: Male
  Weight: 134.6 kg

DRUGS (5)
  1. PHENYTOIN [Suspect]
     Indication: CONVULSION
     Dosage: 300 MG DAILY AT BEDTIME PO
     Route: 048
     Dates: start: 20051122, end: 20060612
  2. CITALOPRAM HYDROBROME [Concomitant]
  3. CLOPIDOGREL BISULFATE [Concomitant]
  4. METOPROLOL TARTRATE [Concomitant]
  5. SIMVASTATIN [Concomitant]

REACTIONS (2)
  - STEVENS-JOHNSON SYNDROME [None]
  - TREATMENT NONCOMPLIANCE [None]
